APPROVED DRUG PRODUCT: ONDANSETRON
Active Ingredient: ONDANSETRON
Strength: 4MG
Dosage Form/Route: TABLET, ORALLY DISINTEGRATING;ORAL
Application: A077717 | Product #001
Applicant: NESHER PHARMACEUTICALS USA LLC
Approved: Jun 25, 2007 | RLD: No | RS: No | Type: DISCN